FAERS Safety Report 10994793 (Version 1)
Quarter: 2015Q2

REPORT INFORMATION
  Report Type: Spontaneous
  Country: US (occurrence: None)
  Receive Date: 20150406
  Receipt Date: 20150406
  Transmission Date: 20150821
  Serious: No
  Sender: FDA-Public Use
  Company Number: None

PATIENT
  Age: 75 Year
  Sex: Male

DRUGS (16)
  1. LEVOTHYROXINE [Concomitant]
     Active Substance: LEVOTHYROXINE
  2. LOATDINE [Concomitant]
  3. CELECOXIB 200MG TEVA [Suspect]
     Active Substance: CELECOXIB
     Indication: ARTHRITIS
     Route: 048
     Dates: start: 20150201, end: 20150403
  4. CALCIUM MAGNESIUM + ZINC WITH D3 [Concomitant]
  5. ALBUTEROL SULFATE. [Concomitant]
     Active Substance: ALBUTEROL SULFATE
  6. OMEGA-3 ACIDS [Concomitant]
     Active Substance: OMEGA-3 FATTY ACIDS
  7. 81MG ASPRIN [Concomitant]
  8. DULERA [Concomitant]
     Active Substance: FORMOTEROL FUMARATE DIHYDRATE\MOMETASONE FUROATE
  9. SAW PALMETTO [Concomitant]
     Active Substance: SAW PALMETTO
  10. MULTIVITIMAN/MULTIMINERAL [Concomitant]
  11. ACETAMINOPHEN. [Concomitant]
     Active Substance: ACETAMINOPHEN
  12. DOXAXZOSIN (PROSTATE) [Concomitant]
  13. GLUCOSAMINE CONDROITIN [Concomitant]
  14. GABAPENTIN. [Concomitant]
     Active Substance: GABAPENTIN
  15. POTASSIUM GLUCONATE [Concomitant]
     Active Substance: POTASSIUM GLUCONATE
  16. FLUTICASONE PROPIONATE NASAL SPRAY [Concomitant]
     Active Substance: FLUTICASONE PROPIONATE

REACTIONS (4)
  - Product substitution issue [None]
  - Drug ineffective [None]
  - Product quality issue [None]
  - Arthritis [None]

NARRATIVE: CASE EVENT DATE: 20150402
